FAERS Safety Report 6613436-5 (Version None)
Quarter: 2010Q1

REPORT INFORMATION
  Report Type: 
  Country: None (occurrence: None)
  Receive Date: 20100304
  Receipt Date: 20100218
  Transmission Date: 20100710
  Serious: Yes (Death, Other)
  Sender: FDA-Public Use
  Company Number: NL-CELGENEUS-114-50794-10021996

PATIENT
  Sex: Male
  Weight: 73 kg

DRUGS (5)
  1. VIDAZA [Suspect]
     Route: 058
     Dates: start: 20100119, end: 20100125
  2. NEUPOGEN [Concomitant]
     Route: 065
     Dates: start: 20091126, end: 20100111
  3. FOLIC ACID [Concomitant]
     Indication: VITAMIN SUPPLEMENTATION
     Route: 065
     Dates: start: 20091015, end: 20100207
  4. EXJADE [Concomitant]
     Indication: IRON OVERLOAD
     Dosage: 3 TABLETS
     Route: 048
     Dates: start: 20091015, end: 20100207
  5. VESICARE [Concomitant]
     Route: 065
     Dates: start: 20100204, end: 20100207

REACTIONS (2)
  - POLYNEUROPATHY [None]
  - PSEUDOMONAL SEPSIS [None]
